FAERS Safety Report 6550158-3 (Version None)
Quarter: 2010Q1

REPORT INFORMATION
  Report Type: 
  Country: None (occurrence: None)
  Receive Date: 20100125
  Receipt Date: 20100122
  Transmission Date: 20100710
  Serious: Yes (Hospitalization, Other)
  Sender: FDA-Public Use
  Company Number: US-MERCK-0811USA03167

PATIENT
  Age: 67 Year
  Sex: Female

DRUGS (1)
  1. FOSAMAX [Suspect]
     Indication: OSTEOPOROSIS
     Route: 048
     Dates: start: 20020118, end: 20080115

REACTIONS (28)
  - ADJUSTMENT DISORDER WITH DEPRESSED MOOD [None]
  - ADVERSE DRUG REACTION [None]
  - ANXIETY DISORDER [None]
  - ARTHROPATHY [None]
  - BLOOD DISORDER [None]
  - BONE DENSITY DECREASED [None]
  - CAROTID ARTERY STENOSIS [None]
  - CHEST PAIN [None]
  - CHRONIC SINUSITIS [None]
  - COLONIC POLYP [None]
  - CONSTIPATION [None]
  - DEPRESSION [None]
  - DIVERTICULUM [None]
  - FISTULA [None]
  - FUNGAL INFECTION [None]
  - HAEMORRHOIDS [None]
  - IRON DEFICIENCY ANAEMIA [None]
  - JAW FRACTURE [None]
  - MIGRAINE [None]
  - MYOCARDIAL INFARCTION [None]
  - OSTEOMYELITIS [None]
  - OSTEONECROSIS [None]
  - POST PROCEDURAL COMPLICATION [None]
  - SKIN CANCER [None]
  - SYNCOPE [None]
  - TEMPOROMANDIBULAR JOINT SYNDROME [None]
  - TOOTH ABSCESS [None]
  - UPPER LIMB FRACTURE [None]
